FAERS Safety Report 7993435-1 (Version None)
Quarter: 2011Q4

REPORT INFORMATION
  Report Type: 
  Country: None (occurrence: None)
  Receive Date: 20111219
  Receipt Date: 20110315
  Transmission Date: 20120403
  Serious: No
  Sender: FDA-Public Use
  Company Number: US-ASTRAZENECA-2011SE14574

PATIENT

DRUGS (2)
  1. LIPITOR [Suspect]
     Route: 065
  2. CRESTOR [Suspect]
     Route: 048

REACTIONS (1)
  - DEAFNESS [None]
